FAERS Safety Report 5170721-4 (Version None)
Quarter: 2006Q4

REPORT INFORMATION
  Report Type: 
  Country: None (occurrence: None)
  Receive Date: 20060919
  Receipt Date: 20060526
  Transmission Date: 20070319
  Serious: No
  Sender: FDA-Public Use
  Company Number: 2006US001171

PATIENT
  Age: 88 Year
  Sex: Female

DRUGS (8)
  1. VESICARE [Suspect]
     Indication: POLLAKIURIA
     Dosage: 5 MG, ORAL
     Route: 048
     Dates: start: 20060501
  2. NORVASC [Concomitant]
  3. LIPITOR [Concomitant]
  4. HYZAAR [Concomitant]
  5. COUMADIN [Concomitant]
  6. SYNTHROID [Concomitant]
  7. SOTALOL HCL [Concomitant]
  8. VITAMINS [Concomitant]

REACTIONS (1)
  - DRUG INEFFECTIVE [None]
